FAERS Safety Report 26100171 (Version 1)
Quarter: 2025Q4

REPORT INFORMATION
  Report Type: Report from Study
  Country: US (occurrence: US)
  Receive Date: 20251128
  Receipt Date: 20251128
  Transmission Date: 20260118
  Serious: Yes (Other)
  Sender: MERZ
  Company Number: US-MERZ PHARMACEUTICALS LLC-ACO_179900_2025

PATIENT
  Sex: Male

DRUGS (1)
  1. INBRIJA [Suspect]
     Active Substance: LEVODOPA
     Indication: Product used for unknown indication
     Dosage: UNK
     Route: 065

REACTIONS (5)
  - Choking [Unknown]
  - Tongue coated [Unknown]
  - Throat irritation [Recovered/Resolved]
  - Cough [Recovered/Resolved]
  - Drug ineffective [Unknown]
